FAERS Safety Report 15751915 (Version 1)
Quarter: 2018Q4

REPORT INFORMATION
  Report Type: Spontaneous
  Country: GB (occurrence: FR)
  Receive Date: 20181221
  Receipt Date: 20181221
  Transmission Date: 20190205
  Serious: Yes (Life-Threatening)
  Sender: FDA-Public Use
  Company Number: FR-FRESENIUS KABI-FK201812852

PATIENT
  Age: 33 Year
  Sex: Female

DRUGS (10)
  1. OXYCODONE HYDROCHLORIDE. [Suspect]
     Active Substance: OXYCODONE HYDROCHLORIDE
     Indication: PAIN
     Dates: start: 20181128, end: 20181128
  2. PROPOFOL (MANUFACTURER UNKNOWN) [Suspect]
     Active Substance: PROPOFOL
     Indication: ANAESTHESIA
     Route: 042
     Dates: start: 20181128, end: 20181128
  3. SUFENTANIL [Suspect]
     Active Substance: SUFENTANIL
     Indication: ANAESTHESIA
     Route: 042
     Dates: start: 20181128, end: 20181128
  4. NEFOPAM HYDROCHLORIDE [Suspect]
     Active Substance: NEFOPAM HYDROCHLORIDE
     Indication: PAIN
     Route: 042
     Dates: start: 20181128, end: 20181128
  5. NIMESULIDE [Suspect]
     Active Substance: NIMESULIDE
     Indication: NEUROMUSCULAR BLOCKING THERAPY
     Route: 042
     Dates: start: 20181128, end: 20181128
  6. EPHEDRINE. [Suspect]
     Active Substance: EPHEDRINE
     Indication: PROCEDURAL HYPOTENSION
     Route: 042
     Dates: start: 20181128, end: 20181128
  7. FACTOR I (FIBRINOGEN) [Suspect]
     Active Substance: FIBRINOGEN HUMAN
     Indication: THIRD STAGE POSTPARTUM HAEMORRHAGE
     Route: 042
     Dates: start: 20181128, end: 20181128
  8. SULPROSTONE [Suspect]
     Active Substance: SULPROSTONE
     Indication: THIRD STAGE POSTPARTUM HAEMORRHAGE
     Route: 042
     Dates: start: 20181128, end: 20181128
  9. KETAMINE [Suspect]
     Active Substance: KETAMINE
     Indication: ANAESTHESIA
     Route: 042
     Dates: start: 20181128, end: 20181128
  10. TRANEXAMIC ACID. [Suspect]
     Active Substance: TRANEXAMIC ACID
     Indication: THIRD STAGE POSTPARTUM HAEMORRHAGE
     Route: 042
     Dates: start: 20181128, end: 20181128

REACTIONS (2)
  - Cardio-respiratory arrest [Recovered/Resolved]
  - Acute respiratory distress syndrome [Recovered/Resolved]

NARRATIVE: CASE EVENT DATE: 20181128
